FAERS Safety Report 13881896 (Version 1)
Quarter: 2017Q3

REPORT INFORMATION
  Report Type: Spontaneous
  Country: US (occurrence: US)
  Receive Date: 20170818
  Receipt Date: 20170818
  Transmission Date: 20171127
  Serious: Yes (Other)
  Sender: FDA-Public Use
  Company Number: US-009507513-1708USA005523

PATIENT
  Age: 18 Year
  Sex: Female
  Weight: 47.62 kg

DRUGS (1)
  1. NEXPLANON [Suspect]
     Active Substance: ETONOGESTREL
     Indication: CONTRACEPTION
     Dosage: 1 DF,  DURATION: 4 YEARS
     Route: 059
     Dates: start: 20170411

REACTIONS (12)
  - Vaginal infection [Unknown]
  - Chest pain [Unknown]
  - Headache [Unknown]
  - Drug prescribing error [Unknown]
  - Fatigue [Unknown]
  - Diarrhoea [Unknown]
  - Influenza like illness [Unknown]
  - Weight decreased [Unknown]
  - Menstruation irregular [Unknown]
  - Hypoaesthesia [Unknown]
  - Back pain [Unknown]
  - Depression [Unknown]

NARRATIVE: CASE EVENT DATE: 20170411
